FAERS Safety Report 8445863-8 (Version None)
Quarter: 2012Q2

REPORT INFORMATION
  Report Type: 
  Country: None (occurrence: None)
  Receive Date: 20120618
  Receipt Date: 20120604
  Transmission Date: 20120825
  Serious: Yes (Hospitalization)
  Sender: FDA-Public Use
  Company Number: FR-BAYER-2012-057999

PATIENT
  Age: 59 Year
  Sex: Female

DRUGS (3)
  1. ASPIRIN [Suspect]
     Indication: TRANSIENT ISCHAEMIC ATTACK
     Dosage: 75 MG, QD
     Route: 048
  2. TELMISARTAN [Concomitant]
     Indication: HYPERTENSION
     Dosage: 40 MG, QD
     Route: 048
  3. ANAGRELIDE HCL [Suspect]
     Indication: THROMBOCYTOSIS
     Dosage: 3 MG, QD
     Route: 048

REACTIONS (8)
  - GINGIVAL DISORDER [None]
  - GINGIVAL BLEEDING [None]
  - OROPHARYNGEAL DISCOMFORT [None]
  - HAEMATEMESIS [None]
  - GASTROINTESTINAL PERFORATION [None]
  - GASTROINTESTINAL HAEMORRHAGE [None]
  - GASTROINTESTINAL ULCER [None]
  - HAEMORRHAGE [None]
